FAERS Safety Report 7218054-6 (Version None)
Quarter: 2011Q1

REPORT INFORMATION
  Report Type: 
  Country: None (occurrence: None)
  Receive Date: 20110110
  Receipt Date: 20110106
  Transmission Date: 20110831
  Serious: Yes (Death)
  Sender: FDA-Public Use
  Company Number: US-CELGENEUS-163-21880-10102685

PATIENT
  Sex: Female

DRUGS (4)
  1. VELCADE [Concomitant]
     Route: 065
  2. DECADRON [Concomitant]
     Route: 065
  3. REVLIMID [Suspect]
     Indication: MULTIPLE MYELOMA
     Route: 048
     Dates: start: 20100101, end: 20100101
  4. REVLIMID [Suspect]
     Route: 048
     Dates: start: 20100801

REACTIONS (1)
  - MULTIPLE MYELOMA [None]
